FAERS Safety Report 25337309 (Version 2)
Quarter: 2025Q3

REPORT INFORMATION
  Report Type: Spontaneous
  Country: US (occurrence: US)
  Receive Date: 20250520
  Receipt Date: 20250723
  Transmission Date: 20251020
  Serious: Yes (Hospitalization, Other)
  Sender: BOEHRINGER INGELHEIM
  Company Number: US-Komodo Health-a23aa000007XjqLAAS

PATIENT
  Age: 89 Year
  Sex: Female

DRUGS (3)
  1. JARDIANCE [Suspect]
     Active Substance: EMPAGLIFLOZIN
     Indication: Cardiac failure
     Dates: start: 202412, end: 20250508
  2. LOSARTAN [Suspect]
     Active Substance: LOSARTAN
     Indication: Hypertension
  3. LASIX [Concomitant]
     Active Substance: FUROSEMIDE
     Indication: Product used for unknown indication

REACTIONS (10)
  - Dehydration [Unknown]
  - Dyspnoea [Unknown]
  - Chills [Unknown]
  - Fungal infection [Unknown]
  - Fatigue [Unknown]
  - Urinary tract infection [Unknown]
  - Pollakiuria [Not Recovered/Not Resolved]
  - Renal impairment [Unknown]
  - Weight decreased [Unknown]
  - Insomnia [Not Recovered/Not Resolved]

NARRATIVE: CASE EVENT DATE: 20250101
